FAERS Safety Report 24159482 (Version 7)
Quarter: 2025Q3

REPORT INFORMATION
  Report Type: Spontaneous
  Country: US (occurrence: US)
  Receive Date: 20240731
  Receipt Date: 20250716
  Transmission Date: 20251020
  Serious: Yes (Other)
  Sender: PFIZER
  Company Number: US-PFIZER INC-PV202400095403

PATIENT
  Age: 71 Year
  Sex: Female
  Weight: 51.3 kg

DRUGS (24)
  1. IBRANCE [Suspect]
     Active Substance: PALBOCICLIB
     Indication: Breast cancer female
     Route: 048
     Dates: start: 20240621, end: 20240815
  2. IBRANCE [Suspect]
     Active Substance: PALBOCICLIB
     Route: 048
     Dates: start: 20240815
  3. IBRANCE [Suspect]
     Active Substance: PALBOCICLIB
     Route: 048
     Dates: start: 20240817, end: 20250509
  4. IBRANCE [Suspect]
     Active Substance: PALBOCICLIB
  5. LETROZOLE [Concomitant]
     Active Substance: LETROZOLE
  6. METOPROLOL SUCCINATE [Concomitant]
     Active Substance: METOPROLOL SUCCINATE
  7. ATORVASTATIN [Concomitant]
     Active Substance: ATORVASTATIN
  8. TRAZODONE [Concomitant]
     Active Substance: TRAZODONE HYDROCHLORIDE
  9. XARELTO [Concomitant]
     Active Substance: RIVAROXABAN
     Route: 048
  10. DOFETILIDE [Concomitant]
     Active Substance: DOFETILIDE
  11. CALCIUM CARBONATE\CHOLECALCIFEROL [Concomitant]
     Active Substance: CALCIUM CARBONATE\CHOLECALCIFEROL
  12. VITAMIN D NOS [Concomitant]
     Active Substance: CHOLECALCIFEROL\ERGOCALCIFEROL
  13. ONDANSETRON [Concomitant]
     Active Substance: ONDANSETRON
  14. IPRATROPIUM [Concomitant]
     Active Substance: IPRATROPIUM
  15. LIPITOR [Concomitant]
     Active Substance: ATORVASTATIN CALCIUM
     Route: 048
  16. CALCIUM CARBONATE [Concomitant]
     Active Substance: CALCIUM CARBONATE
     Route: 048
  17. CHOLECALCIFEROL [Concomitant]
     Active Substance: CHOLECALCIFEROL
     Route: 048
  18. TIKOSYN [Concomitant]
     Active Substance: DOFETILIDE
     Route: 048
  19. ATROVENT [Concomitant]
     Active Substance: IPRATROPIUM BROMIDE
     Route: 045
  20. FEMARA [Concomitant]
     Active Substance: LETROZOLE
     Route: 048
     Dates: start: 20240614
  21. TOPROL XL [Concomitant]
     Active Substance: METOPROLOL SUCCINATE
     Route: 048
  22. ZOFRAN [Concomitant]
     Active Substance: ONDANSETRON HYDROCHLORIDE
     Indication: Nausea
     Route: 048
     Dates: start: 20240617
  23. DESYREL [Concomitant]
     Active Substance: TRAZODONE HYDROCHLORIDE
     Route: 048
  24. METOPROLOL [Concomitant]
     Active Substance: METOPROLOL

REACTIONS (12)
  - Pneumonitis [Recovering/Resolving]
  - Infection [Recovering/Resolving]
  - Alopecia [Not Recovered/Not Resolved]
  - Condition aggravated [Not Recovered/Not Resolved]
  - Red blood cell count decreased [Recovered/Resolved]
  - Stomatitis [Recovered/Resolved]
  - Haemorrhage [Not Recovered/Not Resolved]
  - Arthropod bite [Unknown]
  - Arthropod scratch [Unknown]
  - Dyspnoea exertional [Not Recovered/Not Resolved]
  - Vitreous floaters [Not Recovered/Not Resolved]
  - Dyspnoea [Not Recovered/Not Resolved]

NARRATIVE: CASE EVENT DATE: 20240720
